FAERS Safety Report 18258316 (Version 2)
Quarter: 2020Q3

REPORT INFORMATION
  Report Type: Spontaneous
  Country: US (occurrence: US)
  Receive Date: 20200911
  Receipt Date: 20200928
  Transmission Date: 20201103
  Serious: Yes (Other)
  Sender: FDA-Public Use
  Company Number: US-PURDUE-USA-2020-0165642

PATIENT
  Age: 78 Year
  Sex: Male

DRUGS (3)
  1. OXYCODONE/ ACETAMINOPHEN TABLETS [Suspect]
     Active Substance: ACETAMINOPHEN\OXYCODONE HYDROCHLORIDE
     Indication: PAIN
     Dosage: 325 MG, UNK
     Route: 048
  2. OXYCONTIN [Suspect]
     Active Substance: OXYCODONE HYDROCHLORIDE
     Indication: PAIN
     Route: 048
  3. HYDROCODONE BITARTRATE AND ACETAMINOPHEN [Suspect]
     Active Substance: ACETAMINOPHEN\HYDROCODONE BITARTRATE
     Indication: PAIN
     Dosage: UNK UNK, UNK
     Route: 048

REACTIONS (10)
  - Fall [Unknown]
  - Limb injury [Unknown]
  - Emotional distress [Unknown]
  - Pain [Unknown]
  - Hip surgery [Unknown]
  - Erectile dysfunction [Unknown]
  - Impaired driving ability [Unknown]
  - Dizziness [Unknown]
  - Balance disorder [Unknown]
  - Adverse drug reaction [Unknown]
